FAERS Safety Report 8565472-X (Version None)
Quarter: 2012Q3

REPORT INFORMATION
  Report Type: 
  Country: None (occurrence: None)
  Receive Date: 20120803
  Receipt Date: 20120723
  Transmission Date: 20120928
  Serious: Yes (Other)
  Sender: FDA-Public Use
  Company Number: DE-ROCHE-1064273

PATIENT
  Sex: Female
  Weight: 107 kg

DRUGS (5)
  1. TILIDINE [Concomitant]
     Route: 048
  2. METOPROLOL TARTRATE [Concomitant]
     Route: 048
  3. PANTOPRAZOLE [Concomitant]
     Route: 048
  4. ZELBORAF [Suspect]
     Indication: METASTATIC MALIGNANT MELANOMA
     Route: 048
     Dates: start: 20120405, end: 20120427
  5. LEVOTHYROXINE SODIUM [Concomitant]
     Route: 048

REACTIONS (4)
  - HEPATIC STEATOSIS [None]
  - ANAEMIA [None]
  - HEPATOMEGALY [None]
  - LIVER FUNCTION TEST ABNORMAL [None]
